FAERS Safety Report 21756295 (Version 1)
Quarter: 2022Q4

REPORT INFORMATION
  Report Type: Spontaneous
  Country: FR (occurrence: FR)
  Receive Date: 20221220
  Receipt Date: 20221220
  Transmission Date: 20230113
  Serious: No
  Sender: FDA-Public Use
  Company Number: FR-JAZZ-2022-FR-037998

PATIENT
  Age: 70 Year
  Sex: Male

DRUGS (1)
  1. LURBINECTEDIN [Suspect]
     Active Substance: LURBINECTEDIN
     Indication: Bladder cancer
     Dosage: 3.2 MILLIGRAM/SQ. METER, EVERY 3 WEEKS
     Route: 042

REACTIONS (1)
  - Off label use [Unknown]
